FAERS Safety Report 6257547-5 (Version None)
Quarter: 2009Q3

REPORT INFORMATION
  Report Type: 
  Country: None (occurrence: None)
  Receive Date: 20090706
  Receipt Date: 20090625
  Transmission Date: 20100115
  Serious: Yes (Other)
  Sender: FDA-Public Use
  Company Number: PHHY2009CA19809

PATIENT
  Sex: Female

DRUGS (2)
  1. CLOZARIL [Suspect]
     Indication: SCHIZOPHRENIA
     Dosage: UNK
     Route: 048
     Dates: start: 20060921
  2. CLOZARIL [Suspect]
     Indication: SCHIZOAFFECTIVE DISORDER
     Dosage: 75 MG, UNK
     Route: 048

REACTIONS (7)
  - ANXIETY [None]
  - DYSAESTHESIA [None]
  - DYSPNOEA [None]
  - HYPOAESTHESIA [None]
  - LEUKOCYTOSIS [None]
  - SKIN DISORDER [None]
  - VASCULITIS [None]
